FAERS Safety Report 10543824 (Version 2)
Quarter: 2014Q4

REPORT INFORMATION
  Report Type: Spontaneous
  Country: JP (occurrence: JP)
  Receive Date: 20141027
  Receipt Date: 20141119
  Transmission Date: 20150529
  Serious: Yes (Hospitalization)
  Sender: FDA-Public Use
  Company Number: JP-MYLANLABS-2014M1008378

PATIENT

DRUGS (5)
  1. INFLIXIMAB [Suspect]
     Active Substance: INFLIXIMAB
     Indication: UVEITIS
     Route: 065
     Dates: start: 200708
  2. CICLOSPORIN [Suspect]
     Active Substance: CYCLOSPORINE
     Indication: BEHCET^S SYNDROME
     Route: 065
  3. PREDNISOLONE. [Suspect]
     Active Substance: PREDNISOLONE
     Indication: BEHCET^S SYNDROME
     Route: 065
  4. COLCHICINE. [Concomitant]
     Active Substance: COLCHICINE
     Indication: BEHCET^S SYNDROME
     Route: 065
  5. CICLOSPORIN [Suspect]
     Active Substance: CYCLOSPORINE
     Indication: OFF LABEL USE

REACTIONS (1)
  - B-cell lymphoma [Recovering/Resolving]
